FAERS Safety Report 15136009 (Version 1)
Quarter: 2018Q3

REPORT INFORMATION
  Report Type: Spontaneous
  Country: US (occurrence: US)
  Receive Date: 20180617
  Receipt Date: 20180617
  Transmission Date: 20181010
  Serious: Yes (Disabling)
  Sender: FDA-Public Use
  Company Number: None

PATIENT
  Age: 56 Year
  Sex: Female
  Weight: 58.5 kg

DRUGS (10)
  1. COQ10 [Concomitant]
     Active Substance: UBIDECARENONE
  2. XANAX [Concomitant]
     Active Substance: ALPRAZOLAM
  3. BIOTIN [Concomitant]
     Active Substance: BIOTIN
  4. LEXAPRO [Concomitant]
     Active Substance: ESCITALOPRAM OXALATE
  5. TURMERIC [Concomitant]
     Active Substance: HERBALS\TURMERIC
  6. OMEGA 3 [Concomitant]
     Active Substance: OMEGA-3 FATTY ACIDS
  7. CIPROFLOXACIN. [Suspect]
     Active Substance: CIPROFLOXACIN
     Indication: BACTERIAL INFECTION
     Route: 048
     Dates: start: 20180608, end: 20180614
  8. FISH OIL [Concomitant]
     Active Substance: FISH OIL
  9. SONATA [Concomitant]
     Active Substance: ZALEPLON
  10. CELERY SEED EXTRACT [Concomitant]
     Active Substance: CELERY SEED

REACTIONS (4)
  - Insomnia [None]
  - Palpitations [None]
  - Anxiety [None]
  - Feeding disorder [None]

NARRATIVE: CASE EVENT DATE: 20180608
